FAERS Safety Report 9966057 (Version 1)
Quarter: 2014Q1

REPORT INFORMATION
  Report Type: Spontaneous
  Country: US (occurrence: US)
  Receive Date: 20140305
  Receipt Date: 20140305
  Transmission Date: 20141002
  Serious: No
  Sender: FDA-Public Use
  Company Number: US-ABBVIE-13P-163-1125780-00

PATIENT
  Age: 34 Year
  Sex: Female
  Weight: 63.56 kg

DRUGS (4)
  1. HUMIRA [Suspect]
     Indication: PSORIASIS
     Dosage: ONE DOSE
     Dates: start: 20130620, end: 20130620
  2. HUMIRA [Suspect]
     Dates: start: 20130627, end: 20130711
  3. MULTIVITAMIN [Concomitant]
     Indication: PRODUCT USED FOR UNKNOWN INDICATION
  4. CLOBETASOL [Concomitant]
     Indication: PSORIASIS
     Route: 061

REACTIONS (1)
  - Lymphadenopathy [Unknown]
